FAERS Safety Report 12159705 (Version 1)
Quarter: 2016Q1

REPORT INFORMATION
  Report Type: Spontaneous
  Country: US (occurrence: US)
  Receive Date: 20160308
  Receipt Date: 20160308
  Transmission Date: 20160526
  Serious: No
  Sender: FDA-Public Use
  Company Number: US-GLAXOSMITHKLINE-US2016GSK032272

PATIENT
  Sex: Female

DRUGS (1)
  1. TANZEUM [Suspect]
     Active Substance: ALBIGLUTIDE
     Dosage: 30 MG, UNK
     Dates: start: 20160225

REACTIONS (1)
  - Blood glucose decreased [Unknown]

NARRATIVE: CASE EVENT DATE: 20160225
